FAERS Safety Report 21465190 (Version 1)
Quarter: 2022Q4

REPORT INFORMATION
  Report Type: Report from Study
  Country: US (occurrence: US)
  Receive Date: 20221017
  Receipt Date: 20221017
  Transmission Date: 20230113
  Serious: No
  Sender: FDA-Public Use
  Company Number: US-ABBVIE-22K-163-4501930-00

PATIENT
  Sex: Female

DRUGS (2)
  1. SKYRIZI [Suspect]
     Active Substance: RISANKIZUMAB-RZAA
     Indication: Psoriatic arthropathy
     Dosage: WEEK FOUR?150 MG
     Route: 058
     Dates: start: 20220826, end: 20220826
  2. SKYRIZI [Suspect]
     Active Substance: RISANKIZUMAB-RZAA
     Indication: Psoriasis
     Dosage: WEEK ZERO?150 MG
     Route: 058
     Dates: start: 20220729, end: 20220729

REACTIONS (8)
  - Spinal pain [Unknown]
  - Back pain [Recovered/Resolved]
  - Myalgia [Unknown]
  - Musculoskeletal pain [Not Recovered/Not Resolved]
  - Drug ineffective [Unknown]
  - Erythema [Unknown]
  - Pruritus [Recovering/Resolving]
  - Burning sensation [Unknown]

NARRATIVE: CASE EVENT DATE: 20220101
